FAERS Safety Report 8410754-5 (Version None)
Quarter: 2012Q2

REPORT INFORMATION
  Report Type: 
  Country: None (occurrence: None)
  Receive Date: 20120605
  Receipt Date: 20120531
  Transmission Date: 20120825
  Serious: Yes (Hospitalization)
  Sender: FDA-Public Use
  Company Number: US-AMGEN-USASP2012034393

PATIENT
  Sex: Female

DRUGS (4)
  1. NEULASTA [Suspect]
     Indication: NEUTROPENIA
  2. ANTINEOPLASTIC AGENTS [Concomitant]
  3. NEUPOGEN [Suspect]
     Indication: NEUTROPENIA
  4. NEULASTA [Suspect]
     Indication: ANAEMIA

REACTIONS (2)
  - FEBRILE NEUTROPENIA [None]
  - INFECTION [None]
